FAERS Safety Report 9530352 (Version 2)
Quarter: 2014Q1

REPORT INFORMATION
  Report Type: Report from Study
  Country: CN (occurrence: CN)
  Receive Date: 20130918
  Receipt Date: 20140128
  Transmission Date: 20141002
  Serious: Yes (Hospitalization)
  Sender: FDA-Public Use
  Company Number: CN-ROCHE-1270834

PATIENT
  Age: 54 Year
  Sex: Female
  Weight: 70 kg

DRUGS (7)
  1. TRASTUZUMAB [Suspect]
     Indication: BREAST CANCER
     Dosage: LOADING DOSE
     Route: 042
     Dates: start: 20130501
  2. TRASTUZUMAB [Suspect]
     Dosage: MAINTAINING DOSE. LAST DOSE PRIOR TO SAE 14/AUG/2013
     Route: 042
     Dates: end: 20130904
  3. TRASTUZUMAB [Suspect]
     Route: 042
     Dates: start: 20131016
  4. DOCETAXEL [Suspect]
     Indication: BREAST CANCER
     Dosage: LAST DOSE PRIOR TO SAE 03/JUL/2013.
     Route: 042
     Dates: start: 20130501
  5. PERTUZUMAB [Suspect]
     Indication: BREAST CANCER
     Dosage: LOADING DOSE
     Route: 042
     Dates: start: 20130501
  6. PERTUZUMAB [Suspect]
     Dosage: LAST DOSE PRIOR TO SAE 14/AUG/2013, MAINTENANCE DOSE
     Route: 042
     Dates: end: 20130904
  7. PERTUZUMAB [Suspect]
     Dosage: DRUG RESTARTED
     Route: 042
     Dates: start: 20131016

REACTIONS (1)
  - Skin ulcer [Recovered/Resolved]
